FAERS Safety Report 8298768-X (Version None)
Quarter: 2012Q2

REPORT INFORMATION
  Report Type: 
  Country: None (occurrence: None)
  Receive Date: 20120417
  Receipt Date: 20120417
  Transmission Date: 20120825
  Serious: Yes (Other)
  Sender: FDA-Public Use
  Company Number: None

PATIENT
  Sex: Male
  Weight: 99.7913 kg

DRUGS (2)
  1. OLANZAPINE [Suspect]
     Indication: ELECTROCONVULSIVE THERAPY
     Dosage: 2.5-5 MG 1 X DAILY
     Dates: start: 20120220, end: 20120320
  2. OLANZAPINE [Suspect]
     Indication: BIPOLAR DISORDER
     Dosage: 2.5-5 MG 1 X DAILY
     Dates: start: 20120220, end: 20120320

REACTIONS (3)
  - FEELING ABNORMAL [None]
  - DRUG INEFFECTIVE [None]
  - PRODUCT SUBSTITUTION ISSUE [None]
